FAERS Safety Report 10065465 (Version 1)
Quarter: 2014Q2

REPORT INFORMATION
  Report Type: Spontaneous
  Country: CL (occurrence: CL)
  Receive Date: 20140408
  Receipt Date: 20140408
  Transmission Date: 20141212
  Serious: Yes (Other)
  Sender: FDA-Public Use
  Company Number: CL-PFIZER INC-2014096433

PATIENT
  Age: 77 Year
  Sex: Female

DRUGS (2)
  1. XALATAN [Suspect]
     Indication: GLAUCOMA
     Dosage: 1 DROP, 1X/DAY
     Route: 047
     Dates: start: 1999
  2. ASPIRIN ^BAYER^ [Concomitant]

REACTIONS (4)
  - Blindness unilateral [Unknown]
  - Ocular vascular disorder [Unknown]
  - Hypertension [Unknown]
  - Blood disorder [Not Recovered/Not Resolved]
